FAERS Safety Report 6277635-7 (Version None)
Quarter: 2009Q3

REPORT INFORMATION
  Report Type: 
  Country: None (occurrence: None)
  Receive Date: 20090722
  Receipt Date: 20090716
  Transmission Date: 20100115
  Serious: Yes (Hospitalization)
  Sender: FDA-Public Use
  Company Number: US-ABBOTT-09P-163-0585928-00

PATIENT
  Sex: Male

DRUGS (6)
  1. TRILIPIX [Suspect]
     Indication: DYSLIPIDAEMIA
     Route: 048
     Dates: start: 20090501
  2. CRESTOR [Concomitant]
     Indication: DYSLIPIDAEMIA
     Route: 048
  3. TOPROL-XL [Concomitant]
     Indication: HYPERTENSION
     Route: 048
  4. CELEBREX [Concomitant]
     Indication: DRUG USE FOR UNKNOWN INDICATION
     Route: 048
  5. ASPIRIN [Concomitant]
     Indication: DRUG USE FOR UNKNOWN INDICATION
     Route: 048
  6. NIACIN [Concomitant]
     Indication: DYSLIPIDAEMIA
     Route: 048

REACTIONS (5)
  - ABDOMINAL PAIN [None]
  - NAUSEA [None]
  - PANCREATITIS ACUTE [None]
  - PERICARDIAL EFFUSION [None]
  - VOMITING [None]
